FAERS Safety Report 26097453 (Version 1)
Quarter: 2025Q4

REPORT INFORMATION
  Report Type: Spontaneous
  Country: EU (occurrence: EU)
  Receive Date: 20251127
  Receipt Date: 20251127
  Transmission Date: 20260117
  Serious: Yes (Hospitalization)
  Sender: BOEHRINGER INGELHEIM
  Company Number: EU-BoehringerIngelheim-2025-BI-109347

PATIENT
  Age: 65 Year
  Sex: Male

DRUGS (11)
  1. EMPAGLIFLOZIN [Suspect]
     Active Substance: EMPAGLIFLOZIN
     Indication: Product used for unknown indication
  2. APIXABAN [Concomitant]
     Active Substance: APIXABAN
     Indication: Product used for unknown indication
  3. BISOPROLOL [Concomitant]
     Active Substance: BISOPROLOL
     Indication: Product used for unknown indication
  4. Sacubitril/Valsartan 24/26 mg [Concomitant]
     Indication: Product used for unknown indication
  5. Eplerenon 25 mg [Concomitant]
     Indication: Product used for unknown indication
  6. Vericiguat 2.5 mg [Concomitant]
     Indication: Product used for unknown indication
  7. Torasemid 70 mg [Concomitant]
     Indication: Product used for unknown indication
  8. Xipamid 20 [Concomitant]
     Indication: Product used for unknown indication
  9. AMIODARONE [Concomitant]
     Active Substance: AMIODARONE
     Indication: Product used for unknown indication
  10. Atorvastatin/Ezetimib 40/10 mg [Concomitant]
     Indication: Product used for unknown indication
  11. INSULIN NOS [Concomitant]
     Active Substance: INSULIN NOS
     Indication: Type 2 diabetes mellitus

REACTIONS (2)
  - Cardiac failure [Unknown]
  - Atrial fibrillation [Unknown]
